FAERS Safety Report 7548627-2 (Version None)
Quarter: 2011Q2

REPORT INFORMATION
  Report Type: 
  Country: None (occurrence: None)
  Receive Date: 20110615
  Receipt Date: 20110606
  Transmission Date: 20111010
  Serious: Yes (Death, Other)
  Sender: FDA-Public Use
  Company Number: JP-AMGEN-JPNCT2011030286

PATIENT
  Age: 59 Year
  Sex: Male
  Weight: 62 kg

DRUGS (9)
  1. IRINOTECAN HCL [Concomitant]
     Indication: COLORECTAL CANCER
     Route: 041
  2. FLUOROURACIL [Concomitant]
     Route: 041
  3. GRANISETRON [Concomitant]
     Route: 042
  4. PANITUMUMAB [Suspect]
     Indication: COLORECTAL CANCER
     Dosage: 6 MG/KG, Q2WK
     Route: 041
     Dates: start: 20101125
  5. DEXAMETHASONE SODIUM PHOSPHATE [Suspect]
     Dosage: UNK
     Route: 042
  6. LEUCOVORIN CALCIUM [Concomitant]
     Indication: COLORECTAL CANCER
     Route: 041
  7. FLUOROURACIL [Concomitant]
     Indication: COLORECTAL CANCER
     Route: 040
  8. CORTICOSTEROIDS [Concomitant]
     Indication: PROPHYLAXIS
     Dosage: UNK
  9. ANTIHISTAMINES [Concomitant]
     Indication: PROPHYLAXIS
     Dosage: UNK

REACTIONS (3)
  - DIABETIC COMA [None]
  - COLORECTAL CANCER [None]
  - DERMATITIS ACNEIFORM [None]
